FAERS Safety Report 4504522-4 (Version None)
Quarter: 2004Q4

REPORT INFORMATION
  Report Type: 
  Country: None (occurrence: None)
  Receive Date: 20041116
  Receipt Date: 20041101
  Transmission Date: 20050328
  Serious: No
  Sender: FDA-Public Use
  Company Number: 2004AC00703

PATIENT
  Age: 17 Year
  Sex: Female

DRUGS (1)
  1. OMEPRAZOLE [Suspect]
     Indication: OESOPHAGEAL STENOSIS

REACTIONS (3)
  - BENIGN GASTRIC POLYP [None]
  - BLOOD GASTRIN INCREASED [None]
  - GASTRITIS [None]
